FAERS Safety Report 25216526 (Version 1)
Quarter: 2025Q2

REPORT INFORMATION
  Report Type: Spontaneous
  Country: US (occurrence: US)
  Receive Date: 20250419
  Receipt Date: 20250419
  Transmission Date: 20250717
  Serious: No
  Sender: SANDOZ
  Company Number: US-SANDOZ-SDZ2025US023201

PATIENT
  Sex: Female

DRUGS (1)
  1. ESTRADIOL [Suspect]
     Active Substance: ESTRADIOL
     Indication: Product used for unknown indication
     Dosage: UNK, BIW (ESTRADIOL TRANSDERMAL PATCH,  0.025 MG / 1 10)
     Route: 065

REACTIONS (3)
  - Application site scar [Unknown]
  - Wrong technique in product usage process [Unknown]
  - Product adhesion issue [Unknown]
